FAERS Safety Report 10240585 (Version 1)
Quarter: 2014Q2

REPORT INFORMATION
  Report Type: Spontaneous
  Country: US (occurrence: None)
  Receive Date: 20140613
  Receipt Date: 20140613
  Transmission Date: 20141212
  Serious: No
  Sender: FDA-Public Use
  Company Number: None

PATIENT
  Age: 51 Year
  Sex: Female
  Weight: 50.8 kg

DRUGS (4)
  1. LEVOFLOXACIN LEVAQUIN [Suspect]
     Indication: SINUSITIS
     Dosage: 500 MG 1 PILL DAILY BY MOUTH
     Route: 048
     Dates: start: 20140519, end: 20140520
  2. VAGIFEN [Concomitant]
  3. CITRACAL BONE-DENSITY BUILDER [Concomitant]
  4. FISH OIL SUPPLEMENTS [Concomitant]

REACTIONS (5)
  - Tendon pain [None]
  - Arthralgia [None]
  - Joint crepitation [None]
  - Arthralgia [None]
  - Joint stiffness [None]
